FAERS Safety Report 5380589-9 (Version None)
Quarter: 2007Q3

REPORT INFORMATION
  Report Type: 
  Country: None (occurrence: None)
  Receive Date: 20070706
  Receipt Date: 20070628
  Transmission Date: 20080115
  Serious: Yes (Hospitalization)
  Sender: FDA-Public Use
  Company Number: CN-ASTRAZENECA-2007AP03900

PATIENT
  Age: 58 Year
  Sex: Female

DRUGS (10)
  1. IRESSA [Suspect]
     Indication: LUNG ADENOCARCINOMA
     Route: 048
     Dates: start: 20060328, end: 20060422
  2. SOME CHINESE MEDICINE [Concomitant]
     Indication: ANTIEMETIC SUPPORTIVE CARE
  3. 5% GLUCOSE SOLUTION [Concomitant]
     Indication: ANTIEMETIC SUPPORTIVE CARE
     Dosage: 250+500ML
     Route: 041
  4. CIMETIDINE HCL [Concomitant]
     Indication: ANTIEMETIC SUPPORTIVE CARE
     Route: 041
  5. VIT C [Concomitant]
     Indication: ANTIEMETIC SUPPORTIVE CARE
     Route: 041
  6. VIT B6 [Concomitant]
     Indication: ANTIEMETIC SUPPORTIVE CARE
     Route: 041
  7. INOSINE [Concomitant]
     Indication: ANTIEMETIC SUPPORTIVE CARE
     Route: 041
  8. 10 % KCI [Concomitant]
     Indication: ANTIEMETIC SUPPORTIVE CARE
     Route: 041
  9. TAXOL [Concomitant]
     Dosage: 6 CYCLES
     Dates: start: 20060422, end: 20060902
  10. NEDAPLATIN [Concomitant]
     Dosage: 6 CYCLES
     Dates: start: 20060422, end: 20060902

REACTIONS (1)
  - LIVER DISORDER [None]
